FAERS Safety Report 8076360-X (Version None)
Quarter: 2012Q1

REPORT INFORMATION
  Report Type: 
  Country: None (occurrence: None)
  Receive Date: 20120127
  Receipt Date: 20110926
  Transmission Date: 20120608
  Serious: Yes (Hospitalization)
  Sender: FDA-Public Use
  Company Number: CO-ROCHE-1032261

PATIENT

DRUGS (11)
  1. LANSOPRAZOLE [Concomitant]
  2. SERETIDE [Concomitant]
  3. THEOPHYLLINE [Concomitant]
  4. IPRATROPIUM BROMIDE [Concomitant]
  5. METOCLOPRAMIDE [Concomitant]
  6. LORATADINE [Concomitant]
  7. XOLAIR [Suspect]
     Indication: ASTHMA
     Dosage: 2 AMPOULES 150 MG BY MONTH
     Route: 058
  8. BECLOMETHASONE DIPROPIONATE [Concomitant]
  9. MONTELUKAST SODIUM [Concomitant]
  10. ALBUTEROL SULFATE AUTOHALER [Concomitant]
  11. PREDNISOLONE [Concomitant]

REACTIONS (1)
  - ASTHMATIC CRISIS [None]
